FAERS Safety Report 5721639-7 (Version None)
Quarter: 2008Q2

REPORT INFORMATION
  Report Type: 
  Country: None (occurrence: None)
  Receive Date: 20080429
  Receipt Date: 20070316
  Transmission Date: 20081010
  Serious: No
  Sender: FDA-Public Use
  Company Number: US-ASTRAZENECA-2007UW05287

PATIENT
  Age: 81 Year
  Sex: Female

DRUGS (3)
  1. NEXIUM [Suspect]
     Indication: ULCER
     Route: 048
     Dates: start: 20070315
  2. LIPITOR [Concomitant]
  3. VERAPAMIL [Concomitant]

REACTIONS (2)
  - DISCOMFORT [None]
  - POLLAKIURIA [None]
